FAERS Safety Report 8947267 (Version 2)
Quarter: 2012Q4

REPORT INFORMATION
  Report Type: 
  Country: US (occurrence: US)
  Receive Date: 20121205
  Receipt Date: 20121210
  Transmission Date: 20130627
  Serious: Yes (Life-Threatening, Hospitalization, Disabling)
  Sender: FDA-Public Use
  Company Number: US-JNJFOC-20121201578

PATIENT
  Age: 85 Year
  Sex: Male
  Weight: 116 kg

DRUGS (13)
  1. XARELTO [Suspect]
     Indication: CEREBROVASCULAR ACCIDENT PROPHYLAXIS
     Route: 048
     Dates: start: 20120201, end: 20120821
  2. XARELTO [Suspect]
     Indication: ATRIAL FIBRILLATION
     Route: 048
     Dates: start: 20120201, end: 20120821
  3. LASIX [Concomitant]
     Route: 048
  4. LIPITOR [Concomitant]
     Route: 048
  5. NEXIUM [Concomitant]
     Route: 048
  6. XOPENEX [Concomitant]
     Indication: DYSPNOEA
     Route: 048
  7. POTASSIUM CHLORIDE [Concomitant]
     Route: 048
  8. CO-Q10 [Concomitant]
     Route: 048
  9. DULERA [Concomitant]
  10. FISH OIL [Concomitant]
     Route: 048
  11. HYTRIN [Concomitant]
     Route: 048
  12. VITAMIN D3 [Concomitant]
     Route: 048
  13. GLUCOSAMINE [Concomitant]
     Route: 048

REACTIONS (5)
  - Subdural haematoma [Unknown]
  - Renal failure acute [Unknown]
  - Leukocytosis [Unknown]
  - Pneumonia [Unknown]
  - Agitation [Unknown]
